FAERS Safety Report 8380821-3 (Version None)
Quarter: 2012Q2

REPORT INFORMATION
  Report Type: 
  Country: None (occurrence: None)
  Receive Date: 20120523
  Receipt Date: 20120516
  Transmission Date: 20120825
  Serious: Yes (Other)
  Sender: FDA-Public Use
  Company Number: FR-ROCHE-1040938

PATIENT
  Sex: Female
  Weight: 75 kg

DRUGS (6)
  1. VISMODEGIB [Suspect]
     Indication: BASAL CELL CARCINOMA
     Route: 048
     Dates: start: 20110706
  2. ARANESP [Concomitant]
     Dates: start: 20110928, end: 20111026
  3. TEMAZEPAM [Concomitant]
     Dates: start: 20111123
  4. ACETAMINOPHEN [Concomitant]
     Dates: start: 20110928
  5. FUCIDINE CAP [Concomitant]
     Dates: start: 20111221, end: 20120117
  6. FUCIDINE CAP [Concomitant]
     Dates: start: 20120215

REACTIONS (1)
  - SQUAMOUS CELL CARCINOMA [None]
